FAERS Safety Report 12739094 (Version 16)
Quarter: 2019Q2

REPORT INFORMATION
  Report Type: Report from Study
  Country: None (occurrence: NL)
  Receive Date: 20160913
  Receipt Date: 20190627
  Transmission Date: 20190711
  Serious: Yes (Hospitalization, Other)
  Sender: FDA-Public Use
  Company Number: NL-ABBVIE-16P-114-1590928-00

PATIENT
  Age: 79 Year
  Sex: Female
  Weight: 64.5 kg

DRUGS (7)
  1. DUODOPA [Suspect]
     Active Substance: CARBIDOPA\LEVODOPA
     Dosage: DOSAGES: MORNING DOSE: 10.5 ML CONTINUOUS DOSE: 2.7 ML EXTRA DOSE: 1.0 ML
     Route: 050
  2. MELATONIN [Concomitant]
     Active Substance: MELATONIN
     Indication: PRODUCT USED FOR UNKNOWN INDICATION
  3. DUODOPA [Suspect]
     Active Substance: CARBIDOPA\LEVODOPA
     Dosage: MD: 10.5ML, CD: 2.8ML/HR, ED: 1.0ML?16HR ADMINISTRATION;PUMP IS ON FROM 07:00-2:00
     Route: 050
  4. OXAZEPAM. [Suspect]
     Active Substance: OXAZEPAM
     Indication: PRODUCT USED FOR UNKNOWN INDICATION
     Route: 065
  5. AMITRIPTYLINE [Concomitant]
     Active Substance: AMITRIPTYLINE
     Indication: PRODUCT USED FOR UNKNOWN INDICATION
  6. LEVODOPA/CARBIDOPA [Concomitant]
     Active Substance: CARBIDOPA\LEVODOPA
     Indication: PRODUCT USED FOR UNKNOWN INDICATION
  7. DUODOPA [Suspect]
     Active Substance: CARBIDOPA\LEVODOPA
     Indication: PARKINSON^S DISEASE
     Dosage: MD 10, CD 2.8, ED 1.0
     Route: 050
     Dates: start: 20131107

REACTIONS (62)
  - Apnoea [Unknown]
  - Nocturia [Not Recovered/Not Resolved]
  - Sleep disorder [Recovered/Resolved]
  - Wheezing [Not Recovered/Not Resolved]
  - Musculoskeletal stiffness [Not Recovered/Not Resolved]
  - Weight decreased [Recovered/Resolved]
  - Decreased appetite [Not Recovered/Not Resolved]
  - Fall [Recovered/Resolved]
  - Hyperventilation [Not Recovered/Not Resolved]
  - Balance disorder [Not Recovered/Not Resolved]
  - Panic reaction [Not Recovered/Not Resolved]
  - On and off phenomenon [Not Recovered/Not Resolved]
  - Stoma site pain [Not Recovered/Not Resolved]
  - Stoma site inflammation [Not Recovered/Not Resolved]
  - Stoma site reaction [Not Recovered/Not Resolved]
  - Fall [Not Recovered/Not Resolved]
  - Dysuria [Not Recovered/Not Resolved]
  - Hypoaesthesia [Unknown]
  - Fear of falling [Recovered/Resolved]
  - Dyskinesia [Not Recovered/Not Resolved]
  - Stoma site rash [Not Recovered/Not Resolved]
  - Limb discomfort [Not Recovered/Not Resolved]
  - Sleep disorder [Not Recovered/Not Resolved]
  - Fibroma [Not Recovered/Not Resolved]
  - Cardiac disorder [Not Recovered/Not Resolved]
  - Freezing phenomenon [Not Recovered/Not Resolved]
  - Dyspnoea [Not Recovered/Not Resolved]
  - Stoma site discomfort [Not Recovered/Not Resolved]
  - Nightmare [Not Recovered/Not Resolved]
  - Fall [Recovered/Resolved]
  - Contusion [Not Recovered/Not Resolved]
  - Confusional state [Not Recovered/Not Resolved]
  - Unevaluable event [Not Recovered/Not Resolved]
  - Gait disturbance [Not Recovered/Not Resolved]
  - Dyschezia [Not Recovered/Not Resolved]
  - Weight decreased [Recovering/Resolving]
  - Somnolence [Unknown]
  - Constipation [Not Recovered/Not Resolved]
  - Fibroma [Recovered/Resolved]
  - Chest discomfort [Unknown]
  - Pain in extremity [Not Recovered/Not Resolved]
  - Post-traumatic pain [Not Recovered/Not Resolved]
  - Hyperkinesia [Not Recovered/Not Resolved]
  - Haemoglobin decreased [Not Recovered/Not Resolved]
  - Initial insomnia [Unknown]
  - Movement disorder [Not Recovered/Not Resolved]
  - Abnormal dreams [Recovered/Resolved]
  - Posture abnormal [Not Recovered/Not Resolved]
  - Fall [Recovered/Resolved]
  - Insomnia [Recovered/Resolved]
  - Haemorrhage [Recovered/Resolved]
  - Therapeutic product effect incomplete [Not Recovered/Not Resolved]
  - Stoma site erythema [Recovered/Resolved]
  - Stoma site odour [Recovered/Resolved]
  - Stoma site discharge [Recovered/Resolved]
  - Hallucination [Recovered/Resolved]
  - Gastrointestinal stoma complication [Unknown]
  - Muscle rigidity [Not Recovered/Not Resolved]
  - Dysstasia [Not Recovered/Not Resolved]
  - Memory impairment [Not Recovered/Not Resolved]
  - Dyspnoea [Unknown]
  - Abdominal discomfort [Unknown]

NARRATIVE: CASE EVENT DATE: 2016
